FAERS Safety Report 24180146 (Version 2)
Quarter: 2025Q1

REPORT INFORMATION
  Report Type: Report from Study
  Country: IN (occurrence: IN)
  Receive Date: 20240806
  Receipt Date: 20250324
  Transmission Date: 20250409
  Serious: Yes (Other)
  Sender: NOVARTIS
  Company Number: IN-002147023-NVSC2024IN158882

PATIENT
  Sex: Male

DRUGS (2)
  1. TACROLIMUS [Suspect]
     Active Substance: TACROLIMUS
     Indication: Renal transplant
     Dosage: 1.5 MG, BID
     Route: 048
     Dates: start: 20220508
  2. MYFORTIC [Suspect]
     Active Substance: MYCOPHENOLATE SODIUM
     Indication: Renal transplant
     Dosage: 360 MG, BID
     Route: 048
     Dates: start: 20220508

REACTIONS (7)
  - Type 2 diabetes mellitus [Unknown]
  - Hyperglycaemia [Unknown]
  - Oedema peripheral [Unknown]
  - Hypertension [Unknown]
  - Prescribed underdose [Unknown]
  - Arthralgia [Unknown]
  - Headache [Unknown]
